FAERS Safety Report 25523887 (Version 3)
Quarter: 2025Q3

REPORT INFORMATION
  Report Type: Spontaneous
  Country: CN (occurrence: CN)
  Receive Date: 20250707
  Receipt Date: 20250814
  Transmission Date: 20251020
  Serious: Yes (Other)
  Sender: PFIZER
  Company Number: CN-PFIZER INC-PV202500077169

PATIENT
  Age: 14 Year
  Sex: Male

DRUGS (3)
  1. XYNTHA [Suspect]
     Active Substance: MOROCTOCOG ALFA
     Dates: start: 20230614
  2. XYNTHA [Suspect]
     Active Substance: MOROCTOCOG ALFA
     Dosage: 1500 IU, QD
     Route: 040
     Dates: start: 20250330
  3. XYNTHA [Suspect]
     Active Substance: MOROCTOCOG ALFA
     Dosage: 1500 IU, QD
     Route: 041
     Dates: start: 20250707

REACTIONS (4)
  - Synovectomy [Unknown]
  - Haemarthrosis [Unknown]
  - Joint swelling [Unknown]
  - Off label use [Unknown]

NARRATIVE: CASE EVENT DATE: 20250530
